FAERS Safety Report 8336891-1 (Version None)
Quarter: 2012Q2

REPORT INFORMATION
  Report Type: 
  Country: None (occurrence: None)
  Receive Date: 20120504
  Receipt Date: 20120425
  Transmission Date: 20120825
  Serious: Yes (Hospitalization)
  Sender: FDA-Public Use
  Company Number: TW-SANOFI-AVENTIS-2012SA021209

PATIENT
  Age: 75 Year
  Sex: Male
  Weight: 60.8 kg

DRUGS (7)
  1. PROPRANOLOL [Concomitant]
     Route: 048
     Dates: start: 20120120
  2. MULTAQ [Suspect]
     Indication: ATRIAL FIBRILLATION
     Route: 048
     Dates: start: 20120323, end: 20120326
  3. ADALAT [Concomitant]
     Route: 048
     Dates: start: 20120120
  4. DULCOLAX [Concomitant]
     Route: 048
     Dates: start: 20100120
  5. APROVEL [Concomitant]
     Route: 048
     Dates: start: 20120120
  6. ASPIRIN [Concomitant]
     Route: 048
     Dates: start: 20100120
  7. ISMO [Concomitant]
     Route: 048
     Dates: start: 20120120

REACTIONS (1)
  - ATRIAL FIBRILLATION [None]
